FAERS Safety Report 7042062-1 (Version None)
Quarter: 2010Q4

REPORT INFORMATION
  Report Type: 
  Country: None (occurrence: None)
  Receive Date: 20101013
  Receipt Date: 20090831
  Transmission Date: 20110411
  Serious: No
  Sender: FDA-Public Use
  Company Number: US-ASTRAZENECA-2009SE10876

PATIENT
  Age: 987 Month
  Sex: Male
  Weight: 72.6 kg

DRUGS (5)
  1. SYMBICORT [Suspect]
     Dosage: 160/4.5 2 PUFFS
     Route: 055
  2. SYMBICORT [Suspect]
     Dosage: 160/4.5 1 PUFFS
     Route: 055
  3. SYMBICORT [Suspect]
     Dosage: 160/4.5 2 PUFFS
     Route: 055
  4. SPIRIVA [Concomitant]
  5. EYE DROPS [Concomitant]

REACTIONS (1)
  - ORAL PAIN [None]
